FAERS Safety Report 13691867 (Version 1)
Quarter: 2017Q2

REPORT INFORMATION
  Report Type: Spontaneous
  Country: US (occurrence: US)
  Receive Date: 20170626
  Receipt Date: 20170626
  Transmission Date: 20170830
  Serious: Yes (Hospitalization)
  Sender: FDA-Public Use
  Company Number: US-BRACCO-013529

PATIENT
  Age: 35 Year
  Sex: Female
  Weight: 95 kg

DRUGS (5)
  1. MOBIC [Concomitant]
     Active Substance: MELOXICAM
     Dosage: 1 TAB PO DAILY MAY REPEAT IN 12 HOURS IF NEEDED (MAXIMUM 15 MG A DAY)
     Route: 048
     Dates: end: 20160428
  2. COLACE [Concomitant]
     Active Substance: DOCUSATE SODIUM
     Route: 048
  3. DIPHENHYDRAMINE. [Concomitant]
     Active Substance: DIPHENHYDRAMINE
     Indication: PRURITUS
     Dosage: EVERY 6 HOURS AS NEEDED X 14 DAYS
     Route: 048
  4. TAMSULOSIN [Concomitant]
     Active Substance: TAMSULOSIN
     Route: 048
  5. MULTIHANCE [Suspect]
     Active Substance: GADOBENATE DIMEGLUMINE
     Indication: NUCLEAR MAGNETIC RESONANCE IMAGING SPINAL
     Route: 042
     Dates: start: 20160502, end: 20160502

REACTIONS (1)
  - Hypersensitivity [Recovered/Resolved]

NARRATIVE: CASE EVENT DATE: 20160502
